FAERS Safety Report 5149978-1 (Version None)
Quarter: 2006Q4

REPORT INFORMATION
  Report Type: 
  Country: None (occurrence: None)
  Receive Date: 20061108
  Receipt Date: 20061026
  Transmission Date: 20070319
  Serious: Yes (Hospitalization, Other)
  Sender: FDA-Public Use
  Company Number: 2006109907

PATIENT
  Age: 39 Year
  Sex: Female
  Weight: 50.8029 kg

DRUGS (10)
  1. CHANTIX [Suspect]
     Indication: SMOKING CESSATION THERAPY
     Dosage: 0.5 MG (0.5 MG, 1 IN 1 D), ORAL
     Route: 048
     Dates: start: 20060801, end: 20060903
  2. PLAVIX [Concomitant]
  3. SOMA [Concomitant]
  4. PANTOPRAZOLE SODIUM [Concomitant]
  5. LIPITOR [Concomitant]
  6. PROPRANOLOL [Concomitant]
  7. SYNTHROID [Concomitant]
  8. DIAZEPAM [Concomitant]
  9. FLOVENT [Concomitant]
  10. METOPROLOL TARTRATE [Concomitant]

REACTIONS (5)
  - HEADACHE [None]
  - HEART RATE IRREGULAR [None]
  - NIGHTMARE [None]
  - PANIC REACTION [None]
  - PULMONARY THROMBOSIS [None]
